FAERS Safety Report 11023535 (Version 1)
Quarter: 2015Q2

REPORT INFORMATION
  Report Type: Spontaneous
  Country: US (occurrence: US)
  Receive Date: 20150413
  Receipt Date: 20150413
  Transmission Date: 20150821
  Serious: No
  Sender: FDA-Public Use
  Company Number: US-009507513-1504USA004541

PATIENT
  Age: 65 Year
  Sex: Male

DRUGS (2)
  1. FENTANYL. [Concomitant]
     Active Substance: FENTANYL
  2. BELSOMRA [Suspect]
     Active Substance: SUVOREXANT
     Indication: INSOMNIA
     Dosage: 10 MG, QD
     Route: 048

REACTIONS (4)
  - Aggression [Recovered/Resolved]
  - Enuresis [Recovered/Resolved]
  - Sleep terror [Recovered/Resolved]
  - Mental disorder [Recovered/Resolved]
